FAERS Safety Report 16859707 (Version 1)
Quarter: 2019Q3

REPORT INFORMATION
  Report Type: Spontaneous
  Country: AU (occurrence: AU)
  Receive Date: 20190927
  Receipt Date: 20190927
  Transmission Date: 20191005
  Serious: No
  Sender: FDA-Public Use
  Company Number: AU-BEH-2019107138

PATIENT
  Age: 80 Year
  Sex: Female

DRUGS (1)
  1. PRIVIGEN [Suspect]
     Active Substance: HUMAN IMMUNOGLOBULIN G
     Indication: POLYMYOSITIS
     Dosage: 35 GRAM, TOT
     Route: 065
     Dates: start: 20190912, end: 20190912

REACTIONS (4)
  - Product use in unapproved indication [Unknown]
  - Dry eye [Unknown]
  - No adverse event [Unknown]
  - Pruritus [Unknown]

NARRATIVE: CASE EVENT DATE: 20190912
